FAERS Safety Report 7276727-3 (Version None)
Quarter: 2011Q1

REPORT INFORMATION
  Report Type: 
  Country: None (occurrence: None)
  Receive Date: 20110204
  Receipt Date: 20110126
  Transmission Date: 20110831
  Serious: Yes (Hospitalization)
  Sender: FDA-Public Use
  Company Number: US-ASTRAZENECA-2010SE11909

PATIENT
  Age: 56 Year
  Sex: Female

DRUGS (1)
  1. ZOMIG [Suspect]
     Route: 048

REACTIONS (13)
  - AMNESIA [None]
  - VISUAL IMPAIRMENT [None]
  - INCORRECT DOSE ADMINISTERED [None]
  - SURGERY [None]
  - MIGRAINE [None]
  - INFLUENZA [None]
  - NAUSEA [None]
  - DISTURBANCE IN ATTENTION [None]
  - MALAISE [None]
  - NASOPHARYNGITIS [None]
  - VOMITING [None]
  - ASTHENIA [None]
  - DRUG ADMINISTRATION ERROR [None]
